FAERS Safety Report 6494251-2 (Version None)
Quarter: 2009Q4

REPORT INFORMATION
  Report Type: 
  Country: None (occurrence: None)
  Receive Date: 20091214
  Receipt Date: 20090128
  Transmission Date: 20100525
  Serious: No
  Sender: FDA-Public Use
  Company Number: US-BRISTOL-MYERS SQUIBB COMPANY-14486906

PATIENT
  Age: 15 Year
  Sex: Female
  Weight: 68 kg

DRUGS (3)
  1. ABILIFY [Suspect]
     Indication: DEPRESSION
     Dosage: DOSAGE DECREASED TO 7.5MG ON 14JAN09 AND DISCONTINUED ON 23JAN08.
     Dates: end: 20080123
  2. PROZAC [Suspect]
     Indication: DEPRESSION
  3. TRAZODONE HCL [Concomitant]

REACTIONS (1)
  - EYE MOVEMENT DISORDER [None]
